FAERS Safety Report 6201869-0 (Version None)
Quarter: 2009Q2

REPORT INFORMATION
  Report Type: 
  Country: None (occurrence: None)
  Receive Date: 20090526
  Receipt Date: 20090516
  Transmission Date: 20091009
  Serious: No
  Sender: FDA-Public Use
  Company Number: US-B.I. PHARMACEUTICALS,INC./RIDGEFIELD-2009-BP-06190BP

PATIENT
  Sex: Male

DRUGS (2)
  1. ZANTAC 150 [Suspect]
     Indication: NAUSEA
     Dosage: 300MG
     Route: 048
     Dates: start: 20090515
  2. LORTAB [Concomitant]
     Indication: BACK PAIN

REACTIONS (1)
  - TONGUE DISCOLOURATION [None]
